FAERS Safety Report 16510421 (Version 1)
Quarter: 2019Q3

REPORT INFORMATION
  Report Type: Spontaneous
  Country: US (occurrence: US)
  Receive Date: 20190701
  Receipt Date: 20190701
  Transmission Date: 20191004
  Serious: Yes (Other)
  Sender: FDA-Public Use
  Company Number: None

PATIENT
  Age: 51 Year
  Sex: Male
  Weight: 89.1 kg

DRUGS (18)
  1. APIXABAN [Concomitant]
     Active Substance: APIXABAN
  2. CALCIUM ACETATE. [Concomitant]
     Active Substance: CALCIUM ACETATE
  3. TAMSULOSIN [Concomitant]
     Active Substance: TAMSULOSIN
  4. POLYVINYL ALCOHOL-POVIDONE [Concomitant]
  5. METOPROLOL. [Concomitant]
     Active Substance: METOPROLOL
  6. SEVELAMER [Concomitant]
     Active Substance: SEVELAMER
  7. DORZOLAMIDE [Concomitant]
     Active Substance: DORZOLAMIDE
  8. VALACYCLOVIR [Suspect]
     Active Substance: VALACYCLOVIR HYDROCHLORIDE
     Indication: HERPES SIMPLEX
     Route: 048
  9. GABAPENTIN. [Concomitant]
     Active Substance: GABAPENTIN
  10. ATORVASTATIN [Concomitant]
     Active Substance: ATORVASTATIN
  11. PETROLATUM OINTMENT [Concomitant]
  12. SILVER SULFADIAZINE. [Concomitant]
     Active Substance: SILVER SULFADIAZINE
  13. FUROSEMIDE. [Concomitant]
     Active Substance: FUROSEMIDE
  14. LISINOPRIL. [Concomitant]
     Active Substance: LISINOPRIL
  15. DIFLUPREDNATE [Concomitant]
     Active Substance: DIFLUPREDNATE
  16. ASPIRIN. [Concomitant]
     Active Substance: ASPIRIN
  17. BRIMONIDINE [Concomitant]
     Active Substance: BRIMONIDINE TARTRATE
  18. LATANOPROST. [Concomitant]
     Active Substance: LATANOPROST

REACTIONS (4)
  - Dysarthria [None]
  - Therapy cessation [None]
  - Hallucination, auditory [None]
  - Hallucination, visual [None]

NARRATIVE: CASE EVENT DATE: 20190627
